FAERS Safety Report 8616004-9 (Version None)
Quarter: 2012Q3

REPORT INFORMATION
  Report Type: 
  Country: None (occurrence: None)
  Receive Date: 20120823
  Receipt Date: 20120820
  Transmission Date: 20120928
  Serious: Yes (Death)
  Sender: FDA-Public Use
  Company Number: GB-ROCHE-1070480

PATIENT
  Sex: Female

DRUGS (8)
  1. RAMIPRIL [Concomitant]
  2. ISMN [Concomitant]
  3. LUCENTIS [Suspect]
     Indication: PRODUCT USED FOR UNKNOWN INDICATION
     Route: 050
     Dates: start: 20090215
  4. WARFARIN SODIUM [Concomitant]
  5. INSULIN [Concomitant]
  6. BISOPROLOL FUMARATE [Concomitant]
  7. FUROSEMIDE [Concomitant]
  8. IBUPROFEN [Concomitant]

REACTIONS (1)
  - CARDIAC FAILURE [None]
